FAERS Safety Report 21339063 (Version 1)
Quarter: 2022Q3

REPORT INFORMATION
  Report Type: Spontaneous
  Country: US (occurrence: US)
  Receive Date: 20220915
  Receipt Date: 20220915
  Transmission Date: 20221026
  Serious: No
  Sender: FDA-Public Use
  Company Number: US-VIVUS, Inc.-2021V1000343

PATIENT
  Age: 61 Year
  Sex: Female
  Weight: 69.008 kg

DRUGS (1)
  1. QSYMIA [Suspect]
     Active Substance: PHENTERMINE HYDROCHLORIDE\TOPIRAMATE
     Indication: Weight decreased
     Route: 048
     Dates: start: 20211203, end: 20211212

REACTIONS (4)
  - Hyperhidrosis [Recovered/Resolved]
  - Feeling abnormal [Recovered/Resolved]
  - Food craving [Recovered/Resolved]
  - Palpitations [Recovered/Resolved]

NARRATIVE: CASE EVENT DATE: 20211211
